FAERS Safety Report 22638916 (Version 1)
Quarter: 2023Q2

REPORT INFORMATION
  Report Type: Spontaneous
  Country: CN (occurrence: CN)
  Receive Date: 20230626
  Receipt Date: 20230626
  Transmission Date: 20230721
  Serious: Yes (Other)
  Sender: FDA-Public Use
  Company Number: CN-ALCON LABORATORIES-ALC2023CN002711

PATIENT
  Age: 76 Year
  Sex: Male
  Weight: 71 kg

DRUGS (2)
  1. FLUORESCITE [Suspect]
     Active Substance: FLUORESCEIN SODIUM
     Indication: Skin test
     Dosage: 5.000 ML, QD
     Route: 042
     Dates: start: 20230525, end: 20230525
  2. SODIUM CHLORIDE [Concomitant]
     Active Substance: SODIUM CHLORIDE
     Indication: Skin test
     Dosage: 10.000 ML, QD
     Route: 042
     Dates: start: 20230525, end: 20230525

REACTIONS (7)
  - Cerebral infarction [Unknown]
  - Retinal vein occlusion [Unknown]
  - Cataract [Unknown]
  - Macular oedema [Unknown]
  - Vitreous opacities [Unknown]
  - Carotid arteriosclerosis [Unknown]
  - Hypertension [Unknown]

NARRATIVE: CASE EVENT DATE: 20230525
